FAERS Safety Report 10359377 (Version 2)
Quarter: 2014Q3

REPORT INFORMATION
  Report Type: Spontaneous
  Country: JP (occurrence: JP)
  Receive Date: 20140804
  Receipt Date: 20140912
  Transmission Date: 20150326
  Serious: Yes (Hospitalization)
  Sender: FDA-Public Use
  Company Number: JP-JNJFOC-20140720711

PATIENT
  Age: 72 Year
  Sex: Male
  Weight: 84 kg

DRUGS (3)
  1. TRAMCET [Suspect]
     Active Substance: ACETAMINOPHEN\TRAMADOL
     Indication: PRODUCT USED FOR UNKNOWN INDICATION
     Route: 048
     Dates: start: 20111017
  2. XARELTO [Suspect]
     Active Substance: RIVAROXABAN
     Indication: CEREBROVASCULAR ACCIDENT PROPHYLAXIS
     Route: 048
     Dates: start: 20140425
  3. XARELTO [Suspect]
     Active Substance: RIVAROXABAN
     Indication: ATRIAL FIBRILLATION
     Route: 048
     Dates: start: 20140425

REACTIONS (4)
  - Embolism venous [Recovered/Resolved with Sequelae]
  - Skin ulcer haemorrhage [Not Recovered/Not Resolved]
  - Muscle haemorrhage [Unknown]
  - Stasis dermatitis [Recovered/Resolved with Sequelae]

NARRATIVE: CASE EVENT DATE: 201407
